FAERS Safety Report 10083344 (Version 1)
Quarter: 2014Q2

REPORT INFORMATION
  Report Type: Spontaneous
  Country: MX (occurrence: MX)
  Receive Date: 20140417
  Receipt Date: 20140417
  Transmission Date: 20141212
  Serious: Yes (Hospitalization, Other)
  Sender: FDA-Public Use
  Company Number: MX-009507513-1404MEX007044

PATIENT
  Sex: Female

DRUGS (1)
  1. IMPLANON [Suspect]
     Indication: CONTRACEPTION
     Dosage: IMPLANT FOR THREEE YEARS
     Route: 059

REACTIONS (2)
  - Dysfunctional uterine bleeding [Unknown]
  - Transfusion [Unknown]
